FAERS Safety Report 8108468-4 (Version None)
Quarter: 2012Q1

REPORT INFORMATION
  Report Type: 
  Country: None (occurrence: None)
  Receive Date: 20120202
  Receipt Date: 20120130
  Transmission Date: 20120608
  Serious: Yes (Death)
  Sender: FDA-Public Use
  Company Number: PHHY2012NL007552

PATIENT
  Sex: Male

DRUGS (3)
  1. ZOMETA [Suspect]
     Dosage: 4 MG/ 100 ML ONCE PER 84 DAYS
     Dates: start: 20110725
  2. ZOMETA [Suspect]
     Dosage: 4 MG/ 100 ML ONCE PER 84 DAYS
     Dates: start: 20111104
  3. ZOMETA [Suspect]
     Indication: PROSTATE CANCER METASTATIC
     Dosage: 4 MG/ 100 ML ONCE PER 84 DAYS
     Dates: start: 20080902

REACTIONS (1)
  - ACCIDENT [None]
